FAERS Safety Report 24308444 (Version 1)
Quarter: 2024Q3

REPORT INFORMATION
  Report Type: Spontaneous
  Country: US (occurrence: US)
  Receive Date: 20240911
  Receipt Date: 20240911
  Transmission Date: 20241016
  Serious: Yes (Death, Other)
  Sender: DR REDDYS
  Company Number: US-DRL-USA-SPO/USA/24/0013259

PATIENT
  Age: 57 Year
  Sex: Male

DRUGS (6)
  1. DECITABINE [Suspect]
     Active Substance: DECITABINE
     Indication: Myeloproliferative neoplasm
  2. VENETOCLAX [Suspect]
     Active Substance: VENETOCLAX
     Indication: Myeloproliferative neoplasm
  3. CLADRIBINE [Suspect]
     Active Substance: CLADRIBINE
     Indication: Myeloproliferative neoplasm
     Dosage: 100 MG DAILY
  4. CYTARABINE [Suspect]
     Active Substance: CYTARABINE
     Indication: Myeloproliferative neoplasm
  5. MITOXANTRONE [Suspect]
     Active Substance: MITOXANTRONE HYDROCHLORIDE
     Indication: Myeloproliferative neoplasm
  6. ENASIDENIB [Suspect]
     Active Substance: ENASIDENIB
     Indication: Myeloproliferative neoplasm
     Dosage: 100 MG DAILY 2 MONTHS

REACTIONS (3)
  - Death [Fatal]
  - Differentiation syndrome [Unknown]
  - Drug ineffective for unapproved indication [Unknown]
